FAERS Safety Report 13330459 (Version 1)
Quarter: 2017Q1

REPORT INFORMATION
  Report Type: Spontaneous
  Country: US (occurrence: US)
  Receive Date: 20170314
  Receipt Date: 20170314
  Transmission Date: 20170428
  Serious: Yes (Other)
  Sender: FDA-Public Use
  Company Number: US-ROCHE-1901585

PATIENT
  Sex: Female

DRUGS (21)
  1. ROCEPHIN [Suspect]
     Active Substance: CEFTRIAXONE SODIUM
     Indication: PRODUCT USED FOR UNKNOWN INDICATION
     Route: 065
  2. BUPROPION. [Concomitant]
     Active Substance: BUPROPION
     Route: 065
  3. CHOLECALCIFEROL [Concomitant]
     Active Substance: CHOLECALCIFEROL
  4. FLUOXETINE [Concomitant]
     Active Substance: FLUOXETINE HYDROCHLORIDE
     Route: 065
  5. METOPROLOL SUCCINATE. [Concomitant]
     Active Substance: METOPROLOL SUCCINATE
     Route: 065
  6. OXYCODONE [Concomitant]
     Active Substance: OXYCODONE
     Route: 065
  7. TRIAMCINOLONE [Concomitant]
     Active Substance: TRIAMCINOLONE
  8. ASPIRIN. [Concomitant]
     Active Substance: ASPIRIN
     Route: 065
  9. TERCONAZOLE. [Concomitant]
     Active Substance: TERCONAZOLE
  10. OMEPRAZOLE. [Concomitant]
     Active Substance: OMEPRAZOLE
     Route: 065
  11. ZOLPIDEM [Concomitant]
     Active Substance: ZOLPIDEM\ZOLPIDEM TARTRATE
  12. SUMATRIPTAN. [Concomitant]
     Active Substance: SUMATRIPTAN
  13. NAPROXEN. [Suspect]
     Active Substance: NAPROXEN
     Indication: PRODUCT USED FOR UNKNOWN INDICATION
     Route: 065
  14. ZOLMITRIPTAN. [Concomitant]
     Active Substance: ZOLMITRIPTAN
  15. VANDAZOLE [Concomitant]
     Active Substance: METRONIDAZOLE
  16. ROPINIROLE. [Concomitant]
     Active Substance: ROPINIROLE
  17. CLONAZEPAM. [Suspect]
     Active Substance: CLONAZEPAM
     Indication: PRODUCT USED FOR UNKNOWN INDICATION
     Route: 065
  18. ESTRADIOL. [Concomitant]
     Active Substance: ESTRADIOL
     Route: 065
  19. IMIQUIMOD. [Concomitant]
     Active Substance: IMIQUIMOD
     Dosage: 5 % CREAM
     Route: 065
  20. LIDOCAINE. [Concomitant]
     Active Substance: LIDOCAINE
  21. MUPIROCIN. [Concomitant]
     Active Substance: MUPIROCIN

REACTIONS (18)
  - Fibrocystic breast disease [Unknown]
  - Ventricular tachycardia [Unknown]
  - Pruritus allergic [Unknown]
  - Large intestine benign neoplasm [Unknown]
  - Humerus fracture [Unknown]
  - Drug hypersensitivity [Unknown]
  - Panic disorder [Unknown]
  - Peritoneal adhesions [Unknown]
  - Gastrooesophageal reflux disease [Unknown]
  - Hypertonic bladder [Unknown]
  - Dyslipidaemia [Unknown]
  - Plantar fasciitis [Unknown]
  - Facial pain [Unknown]
  - Head injury [Unknown]
  - Major depression [Unknown]
  - Pain [Unknown]
  - Post concussion syndrome [Unknown]
  - Insomnia [Unknown]
